FAERS Safety Report 20634864 (Version 2)
Quarter: 2022Q2

REPORT INFORMATION
  Report Type: Spontaneous
  Country: US (occurrence: US)
  Receive Date: 20220325
  Receipt Date: 20220414
  Transmission Date: 20220720
  Serious: No
  Sender: FDA-Public Use
  Company Number: US-BAUSCH-BL-2022-007222

PATIENT
  Age: 79 Year
  Sex: Female
  Weight: 52.664 kg

DRUGS (5)
  1. LUMIFY [Suspect]
     Active Substance: BRIMONIDINE TARTRATE
     Indication: Ocular hyperaemia
     Route: 047
     Dates: end: 20220317
  2. LUMIFY [Suspect]
     Active Substance: BRIMONIDINE TARTRATE
  3. MINERALS\VITAMINS [Suspect]
     Active Substance: MINERALS\VITAMINS
     Indication: Product used for unknown indication
     Route: 065
  4. ASPIRIN [Concomitant]
     Active Substance: ASPIRIN
     Indication: Product used for unknown indication
     Dosage: 2 TABLET QD
  5. REFRESH TEARS WITH LUBRICANT [Concomitant]
     Indication: Product used for unknown indication
     Route: 065

REACTIONS (7)
  - Instillation site irritation [Not Recovered/Not Resolved]
  - Eyelid vascular disorder [Unknown]
  - Instillation site swelling [Unknown]
  - Instillation site hypersensitivity [Unknown]
  - Ocular hyperaemia [Not Recovered/Not Resolved]
  - Condition aggravated [Not Recovered/Not Resolved]
  - Product quality issue [Unknown]
